FAERS Safety Report 6385439-X (Version None)
Quarter: 2009Q4

REPORT INFORMATION
  Report Type: 
  Country: None (occurrence: None)
  Receive Date: 20091002
  Receipt Date: 20081121
  Transmission Date: 20100525
  Serious: No
  Sender: FDA-Public Use
  Company Number: US-ASTRAZENECA-2008UW18523

PATIENT
  Age: 62 Year
  Sex: Female
  Weight: 79.8 kg

DRUGS (2)
  1. ARIMIDEX [Suspect]
     Indication: BREAST CANCER FEMALE
     Route: 048
     Dates: start: 20071201
  2. METOPROLOL [Concomitant]
     Route: 048

REACTIONS (7)
  - BLOOD CHOLESTEROL INCREASED [None]
  - BLOOD PRESSURE INCREASED [None]
  - GRIP STRENGTH [None]
  - JOINT LOCK [None]
  - PAIN IN EXTREMITY [None]
  - TRIGGER FINGER [None]
  - WEIGHT INCREASED [None]
